FAERS Safety Report 4315206-X (Version None)
Quarter: 2004Q1

REPORT INFORMATION
  Report Type: 
  Country: None (occurrence: None)
  Receive Date: 20040309
  Receipt Date: 20040223
  Transmission Date: 20041129
  Serious: Yes (Hospitalization)
  Sender: FDA-Public Use
  Company Number: US_0402101036

PATIENT
  Age: 33 Year
  Sex: Male

DRUGS (6)
  1. XIGRIS [Suspect]
     Indication: SEPSIS SYNDROME
  2. VANCOMYCIN [Concomitant]
  3. AMPICILLIN [Concomitant]
  4. METRONIDAZOLE [Concomitant]
  5. CEFEPIME [Concomitant]
  6. CIPROFLOXACIN [Concomitant]

REACTIONS (4)
  - COAGULOPATHY [None]
  - INTERNATIONAL NORMALISED RATIO INCREASED [None]
  - PLATELET COUNT DECREASED [None]
  - POST PROCEDURAL COMPLICATION [None]
